FAERS Safety Report 17727867 (Version 2)
Quarter: 2020Q2

REPORT INFORMATION
  Report Type: Spontaneous
  Country: US (occurrence: US)
  Receive Date: 20200430
  Receipt Date: 20200603
  Transmission Date: 20200714
  Serious: Yes (Other)
  Sender: FDA-Public Use
  Company Number: US-PFIZER INC-2020150186

PATIENT
  Age: 56 Year
  Sex: Female

DRUGS (2)
  1. XELJANZ [Suspect]
     Active Substance: TOFACITINIB CITRATE
     Indication: RAYNAUD^S PHENOMENON
     Dosage: 5 MG, 1X/DAY
  2. XELJANZ [Suspect]
     Active Substance: TOFACITINIB CITRATE
     Indication: POLYCHONDRITIS
     Dosage: 5 MG, UNK

REACTIONS (7)
  - Movement disorder [Unknown]
  - Product use in unapproved indication [Unknown]
  - Coordination abnormal [Unknown]
  - Hypoaesthesia [Unknown]
  - Monoplegia [Unknown]
  - Malaise [Unknown]
  - Off label use [Unknown]
